FAERS Safety Report 11871501 (Version 2)
Quarter: 2016Q1

REPORT INFORMATION
  Report Type: Report from Study
  Country: US (occurrence: US)
  Receive Date: 20151228
  Receipt Date: 20160204
  Transmission Date: 20160526
  Serious: Yes (Hospitalization, Other)
  Sender: FDA-Public Use
  Company Number: US-AMGEN-USASP2011068588

PATIENT
  Age: 52 Year
  Sex: Male
  Weight: 122.86 kg

DRUGS (4)
  1. ENBREL [Suspect]
     Active Substance: ETANERCEPT
     Indication: RHEUMATOID ARTHRITIS
     Dosage: 25 MG, UNK
     Route: 065
  2. METHOTREXATE [Concomitant]
     Active Substance: METHOTREXATE
     Dosage: UNK
     Dates: start: 19900319
  3. ENBREL [Suspect]
     Active Substance: ETANERCEPT
     Dosage: 25 MG, QWK
     Route: 065
  4. ENBREL [Suspect]
     Active Substance: ETANERCEPT
     Dosage: 50 MG, QWK
     Route: 065

REACTIONS (20)
  - Surgery [Unknown]
  - Device issue [Unknown]
  - Inappropriate schedule of drug administration [Unknown]
  - Scar [Unknown]
  - Injection site pain [Unknown]
  - Injection site bruising [Not Recovered/Not Resolved]
  - Nerve injury [Unknown]
  - Hip arthroplasty [Unknown]
  - Grip strength decreased [Unknown]
  - Pain [Unknown]
  - Shoulder arthroplasty [Recovered/Resolved]
  - Blindness [Unknown]
  - Cataract operation [Unknown]
  - Back disorder [Unknown]
  - Mobility decreased [Unknown]
  - Iritis [Unknown]
  - Knee arthroplasty [Unknown]
  - Dry skin [Not Recovered/Not Resolved]
  - Hypoaesthesia [Unknown]
  - Injection site haemorrhage [Not Recovered/Not Resolved]

NARRATIVE: CASE EVENT DATE: 1999
